FAERS Safety Report 24834641 (Version 1)
Quarter: 2025Q1

REPORT INFORMATION
  Report Type: Spontaneous
  Country: GB (occurrence: GB)
  Receive Date: 20250113
  Receipt Date: 20250113
  Transmission Date: 20250409
  Serious: Yes (Death, Life-Threatening, Other)
  Sender: AUROBINDO
  Company Number: GB-MHRA-MED-202412311658454420-WSFPR

PATIENT
  Age: 77 Year
  Sex: Female

DRUGS (1)
  1. CINACALCET [Suspect]
     Active Substance: CINACALCET
     Indication: Product used for unknown indication
     Route: 065

REACTIONS (1)
  - Death [Fatal]
